FAERS Safety Report 23295498 (Version 1)
Quarter: 2023Q4

REPORT INFORMATION
  Report Type: Spontaneous
  Country: US (occurrence: US)
  Receive Date: 20231214
  Receipt Date: 20231214
  Transmission Date: 20240110
  Serious: No
  Sender: FDA-Public Use
  Company Number: US-ALVOGEN-2023089238

PATIENT
  Sex: Female

DRUGS (1)
  1. FENTANYL [Suspect]
     Active Substance: FENTANYL\FENTANYL CITRATE
     Indication: Back pain
     Dosage: STRENGTH: 75 MCG?MANUFACTURING DATE: 13-JUN-2022.
     Dates: start: 20230201

REACTIONS (4)
  - Therapeutic response decreased [Unknown]
  - Wrong technique in device usage process [Unknown]
  - Muscle spasms [Unknown]
  - Limb discomfort [Unknown]
